FAERS Safety Report 7547065-6 (Version None)
Quarter: 2011Q2

REPORT INFORMATION
  Report Type: 
  Country: None (occurrence: None)
  Receive Date: 20110614
  Receipt Date: 20110531
  Transmission Date: 20111010
  Serious: No
  Sender: FDA-Public Use
  Company Number: US-B.I. PHARMACEUTICALS,INC./RIDGEFIELD-2011-BP-11104BP

PATIENT
  Sex: Female

DRUGS (10)
  1. PRADAXA [Suspect]
     Indication: ATRIAL FIBRILLATION
     Dosage: 300 MG
     Route: 048
     Dates: start: 20101201
  2. ZETIA [Concomitant]
     Indication: BLOOD CHOLESTEROL INCREASED
     Route: 048
  3. NORVASC [Concomitant]
     Indication: HYPERTENSION
     Route: 048
  4. OMEPRAZOLE [Concomitant]
     Indication: OESOPHAGEAL DISORDER
  5. BONIVA [Concomitant]
     Indication: OSTEOPOROSIS
     Dosage: 1-MONTHLY
     Route: 048
  6. DIGOXIN [Concomitant]
     Indication: CARDIAC FAILURE
     Route: 048
  7. ATACAND [Concomitant]
     Indication: CARDIAC DISORDER
     Route: 048
  8. VITAMIN D [Concomitant]
     Indication: SUPPLEMENTATION THERAPY
     Route: 048
  9. DEMADOX [Concomitant]
     Indication: BLADDER DISORDER
     Route: 048
  10. THYROID TAB [Concomitant]
     Indication: HYPOTHYROIDISM
     Route: 048

REACTIONS (3)
  - MUSCLE SPASMS [None]
  - PRURITUS [None]
  - FEELING COLD [None]
